FAERS Safety Report 12781764 (Version 4)
Quarter: 2016Q4

REPORT INFORMATION
  Report Type: Report from Study
  Country: CA (occurrence: CA)
  Receive Date: 20160926
  Receipt Date: 20161111
  Transmission Date: 20170207
  Serious: Yes (Hospitalization, Other)
  Sender: FDA-Public Use
  Company Number: CA-GILEAD-2016-0231401

PATIENT
  Age: 62 Year
  Sex: Female

DRUGS (2)
  1. LEDIPASVIR/SOFOSBUVIR [Suspect]
     Active Substance: LEDIPASVIR\SOFOSBUVIR
     Dosage: 1 DF, UNK
     Route: 048
     Dates: start: 20160829
  2. LEDIPASVIR/SOFOSBUVIR [Suspect]
     Active Substance: LEDIPASVIR\SOFOSBUVIR
     Indication: CHRONIC HEPATITIS C
     Dosage: UNK
     Route: 048
     Dates: start: 20160805, end: 20160828

REACTIONS (11)
  - Head injury [Unknown]
  - Bipolar I disorder [Unknown]
  - Asthma [Unknown]
  - Arthralgia [Unknown]
  - Drug dose omission [Unknown]
  - Haematemesis [Unknown]
  - Pain [Not Recovered/Not Resolved]
  - Fall [Unknown]
  - Drug dose omission [Recovered/Resolved]
  - Mania [Unknown]
  - Fracture [Unknown]

NARRATIVE: CASE EVENT DATE: 20160828
